FAERS Safety Report 17495415 (Version 2)
Quarter: 2020Q2

REPORT INFORMATION
  Report Type: Spontaneous
  Country: US (occurrence: US)
  Receive Date: 20200303
  Receipt Date: 20200424
  Transmission Date: 20200713
  Serious: Yes (Hospitalization, Disabling)
  Sender: FDA-Public Use
  Company Number: US-JNJFOC-20200239378

PATIENT
  Age: 55 Year
  Sex: Male

DRUGS (2)
  1. INVOKANA [Suspect]
     Active Substance: CANAGLIFLOZIN
     Indication: DIABETES MELLITUS
     Route: 048
  2. INVOKAMET [Suspect]
     Active Substance: CANAGLIFLOZIN\METFORMIN HYDROCHLORIDE
     Indication: DIABETES MELLITUS
     Dosage: 150-1000 MG
     Route: 048

REACTIONS (7)
  - Gangrene [Unknown]
  - Sepsis [Unknown]
  - Leg amputation [Unknown]
  - Osteomyelitis [Unknown]
  - Leukopenia [Unknown]
  - Diabetic foot infection [Unknown]
  - Toe amputation [Unknown]

NARRATIVE: CASE EVENT DATE: 2018
